FAERS Safety Report 10333823 (Version 1)
Quarter: 2014Q3

REPORT INFORMATION
  Report Type: Report from Study
  Country: US (occurrence: US)
  Receive Date: 20140723
  Receipt Date: 20140723
  Transmission Date: 20150326
  Serious: Yes (Hospitalization)
  Sender: FDA-Public Use
  Company Number: US-BIOGENIDEC-2014BI072025

PATIENT
  Age: 44 Year
  Sex: Female

DRUGS (10)
  1. FOLIC ACID. [Concomitant]
     Active Substance: FOLIC ACID
  2. AVONEX [Suspect]
     Active Substance: INTERFERON BETA-1A
     Indication: MULTIPLE SCLEROSIS
     Route: 030
     Dates: start: 20130814
  3. LYRICA [Concomitant]
     Active Substance: PREGABALIN
  4. KEFLEX [Concomitant]
     Active Substance: CEPHALEXIN
  5. LAMICTAL [Concomitant]
     Active Substance: LAMOTRIGINE
  6. NEURONTIN [Concomitant]
     Active Substance: GABAPENTIN
  7. NOREO [Concomitant]
  8. BACLOFEN. [Concomitant]
     Active Substance: BACLOFEN
  9. VITAMIN D [Concomitant]
     Active Substance: CHOLECALCIFEROL
  10. KLONOPIN [Concomitant]
     Active Substance: CLONAZEPAM

REACTIONS (2)
  - Swelling [Unknown]
  - Convulsion [Unknown]

NARRATIVE: CASE EVENT DATE: 20140710
